FAERS Safety Report 21301329 (Version 1)
Quarter: 2022Q3

REPORT INFORMATION
  Report Type: Report from Study
  Country: TR (occurrence: TR)
  Receive Date: 20220907
  Receipt Date: 20220907
  Transmission Date: 20221026
  Serious: Yes (Other)
  Sender: FDA-Public Use
  Company Number: TR-SUN PHARMACEUTICAL INDUSTRIES LTD-2022RR-353492

PATIENT

DRUGS (4)
  1. FLECAINIDE [Suspect]
     Active Substance: FLECAINIDE
     Indication: Foetal arrhythmia
     Dosage: 100 MILLIGRAM, TID
     Route: 064
  2. DIGOXIN [Suspect]
     Active Substance: DIGOXIN
     Indication: Foetal arrhythmia
     Dosage: 500 MICROGRAM, DAILY
     Route: 064
  3. DIGOXIN [Suspect]
     Active Substance: DIGOXIN
     Dosage: 250 MICROGRAM
     Route: 064
  4. DIGOXIN [Suspect]
     Active Substance: DIGOXIN
     Dosage: 250 MICROGRAM, TID
     Route: 064

REACTIONS (2)
  - Foetal exposure during pregnancy [Unknown]
  - Hydrops foetalis [Unknown]
